FAERS Safety Report 4875532-2 (Version None)
Quarter: 2005Q4

REPORT INFORMATION
  Report Type: 
  Country: None (occurrence: None)
  Receive Date: 20051227
  Receipt Date: 20051209
  Transmission Date: 20060501
  Serious: Yes (Death, Hospitalization)
  Sender: FDA-Public Use
  Company Number: 200512017BBE

PATIENT
  Age: 79 Year
  Sex: Male

DRUGS (1)
  1. GAMIMUNE N 10% [Suspect]
     Dosage: 200 ML
     Dates: start: 20051028

REACTIONS (5)
  - CHILLS [None]
  - HYPERTENSION [None]
  - INFUSION RELATED REACTION [None]
  - LEUKOPENIA [None]
  - PYREXIA [None]
